FAERS Safety Report 6333481-7 (Version None)
Quarter: 2009Q3

REPORT INFORMATION
  Report Type: 
  Country: None (occurrence: None)
  Receive Date: 20090828
  Receipt Date: 20090820
  Transmission Date: 20100115
  Serious: Yes (Hospitalization)
  Sender: FDA-Public Use
  Company Number: JP-AMGEN-US326222

PATIENT
  Sex: Female

DRUGS (3)
  1. ENBREL [Suspect]
     Indication: RHEUMATOID ARTHRITIS
     Route: 058
     Dates: start: 20060325, end: 20081001
  2. MEDROL [Concomitant]
     Indication: RHEUMATOID ARTHRITIS
     Route: 048
     Dates: start: 20020901, end: 20081001
  3. LOXONIN [Concomitant]
     Indication: RHEUMATOID ARTHRITIS
     Route: 048
     Dates: start: 20020901, end: 20081001

REACTIONS (7)
  - ACUTE DISSEMINATED ENCEPHALOMYELITIS [None]
  - DIARRHOEA [None]
  - ENCEPHALITIS HERPES [None]
  - ENCEPHALOPATHY [None]
  - EPSTEIN-BARR VIRUS INFECTION [None]
  - PNEUMONIA ASPIRATION [None]
  - VOMITING [None]
